FAERS Safety Report 15122389 (Version 5)
Quarter: 2018Q3

REPORT INFORMATION
  Report Type: Spontaneous
  Country: US (occurrence: US)
  Receive Date: 20180709
  Receipt Date: 20180808
  Transmission Date: 20181010
  Serious: Yes (Hospitalization, Other)
  Sender: FDA-Public Use
  Company Number: US-PFIZER INC-2018263328

PATIENT
  Age: 48 Year
  Sex: Female

DRUGS (5)
  1. XELJANZ [Suspect]
     Active Substance: TOFACITINIB CITRATE
     Dosage: 5 MG, 2X/DAY
     Route: 048
     Dates: start: 2018
  2. XELJANZ [Suspect]
     Active Substance: TOFACITINIB CITRATE
     Indication: RHEUMATOID ARTHRITIS
     Dosage: 5 MG, 2X/DAY
     Route: 048
     Dates: start: 20180126, end: 2018
  3. GLATOPA [Concomitant]
     Active Substance: GLATIRAMER ACETATE
     Dosage: UNK
  4. GLATIRAMER ACETATE. [Concomitant]
     Active Substance: GLATIRAMER ACETATE
     Dosage: UNK
  5. XELJANZ [Suspect]
     Active Substance: TOFACITINIB CITRATE
     Dosage: 5 MG, 2X/DAY
     Route: 048

REACTIONS (14)
  - Headache [Unknown]
  - Depression [Unknown]
  - Central nervous system lesion [Unknown]
  - Eye infection [Unknown]
  - Tremor [Unknown]
  - Pneumothorax [Unknown]
  - Eye swelling [Unknown]
  - Eye pain [Unknown]
  - Weight increased [Unknown]
  - Ocular hyperaemia [Unknown]
  - Vomiting [Unknown]
  - Malaise [Unknown]
  - Multiple sclerosis relapse [Unknown]
  - Infection [Unknown]

NARRATIVE: CASE EVENT DATE: 2018
